FAERS Safety Report 19171300 (Version 1)
Quarter: 2021Q2

REPORT INFORMATION
  Report Type: Other
  Country: CA (occurrence: CA)
  Receive Date: 20210423
  Receipt Date: 20210423
  Transmission Date: 20210717
  Serious: Yes (Disabling)
  Sender: FDA-Public Use
  Company Number: CA-APOTEX-2021AP009358

PATIENT
  Age: 30 Year
  Sex: Female

DRUGS (3)
  1. ROSUVASTATIN. [Suspect]
     Active Substance: ROSUVASTATIN
     Indication: HYPERCHOLESTEROLAEMIA
     Dosage: 40 UNKNOWN UNIT
     Route: 048
  2. LIPITOR [Suspect]
     Active Substance: ATORVASTATIN CALCIUM
     Indication: HYPERCHOLESTEROLAEMIA
     Dosage: 40 MILLIGRAM
     Route: 065
  3. APO?SIMVASTATIN [Suspect]
     Active Substance: SIMVASTATIN
     Indication: HYPERCHOLESTEROLAEMIA
     Dosage: 40 UNKNOWN UNIT
     Route: 065

REACTIONS (21)
  - Headache [Unknown]
  - Loss of personal independence in daily activities [Unknown]
  - Nasal congestion [Unknown]
  - Visual impairment [Unknown]
  - Irritability [Unknown]
  - Iron deficiency anaemia [Unknown]
  - Musculoskeletal stiffness [Unknown]
  - Memory impairment [Unknown]
  - Myalgia [Unknown]
  - Disturbance in attention [Unknown]
  - Microcytic anaemia [Unknown]
  - Dyspnoea [Unknown]
  - Fatigue [Unknown]
  - Impaired work ability [Unknown]
  - Nasopharyngitis [Unknown]
  - Swelling [Unknown]
  - Trichorrhexis [Unknown]
  - Allergic respiratory symptom [Unknown]
  - Onychoclasis [Unknown]
  - Respiratory disorder [Unknown]
  - Skin hypertrophy [Unknown]
